FAERS Safety Report 11026129 (Version 1)
Quarter: 2015Q2

REPORT INFORMATION
  Report Type: Spontaneous
  Country: US (occurrence: US)
  Receive Date: 20150414
  Receipt Date: 20150414
  Transmission Date: 20150821
  Serious: Yes (Other)
  Sender: FDA-Public Use
  Company Number: US-WATSON-2015-07424

PATIENT
  Age: 81 Year
  Sex: Female
  Weight: 65 kg

DRUGS (1)
  1. HYDROXYCHLOROQUINE SULFATE (WATSON LABORATORIES) [Suspect]
     Active Substance: HYDROXYCHLOROQUINE SULFATE
     Indication: ALOPECIA
     Dosage: 400 MG, DAILY
     Route: 065

REACTIONS (2)
  - Retinopathy [Unknown]
  - Glaucoma [Unknown]
